FAERS Safety Report 8469380 (Version 4)
Quarter: 2012Q4

REPORT INFORMATION
  Report Type: 
  Country: SE (occurrence: SE)
  Receive Date: 20120321
  Receipt Date: 20121207
  Transmission Date: 20130627
  Serious: Yes (Hospitalization, Other)
  Sender: FDA-Public Use
  Company Number: PHHY2012SE023001

PATIENT
  Age: 58 Year
  Sex: Female

DRUGS (9)
  1. CLOZAPINE [Suspect]
     Route: 048
  2. LEPONEX [Suspect]
     Route: 048
  3. CLOZAPINE ACTAVIS [Suspect]
     Route: 048
  4. METFORMIN [Concomitant]
  5. ENALAPRIL [Concomitant]
  6. AMLODIPIN [Concomitant]
  7. SIMVASTATIN [Concomitant]
  8. ABSENOR [Concomitant]
  9. ABILIFY [Concomitant]

REACTIONS (6)
  - Depressed mood [Not Recovered/Not Resolved]
  - Social avoidant behaviour [Not Recovered/Not Resolved]
  - Anosognosia [Unknown]
  - Decreased activity [Not Recovered/Not Resolved]
  - Diabetes mellitus [Not Recovered/Not Resolved]
  - Blood pressure increased [Not Recovered/Not Resolved]
